FAERS Safety Report 18025982 (Version 1)
Quarter: 2020Q3

REPORT INFORMATION
  Report Type: Spontaneous
  Country: DE (occurrence: DE)
  Receive Date: 20200715
  Receipt Date: 20200715
  Transmission Date: 20201103
  Serious: Yes (Hospitalization, Other)
  Sender: FDA-Public Use
  Company Number: DE-PFIZER INC-2020202444

PATIENT
  Sex: Female
  Weight: 59 kg

DRUGS (2)
  1. CYTOTEC [Suspect]
     Active Substance: MISOPROSTOL
     Indication: LABOUR INDUCTION
     Dosage: 100 UG (50 UG EACH AT 11:20 AND 16:00)
     Route: 064
     Dates: start: 20171219
  2. CYTOTEC [Suspect]
     Active Substance: MISOPROSTOL
     Dosage: 200 UG (100 UG EACH AT 11:40 A.M. AND 4:24 P.M.)
     Route: 064
     Dates: start: 20171220

REACTIONS (3)
  - Foetal heart rate disorder [Unknown]
  - Foetal exposure during delivery [Unknown]
  - Bradycardia foetal [Unknown]

NARRATIVE: CASE EVENT DATE: 20171219
